FAERS Safety Report 23653121 (Version 2)
Quarter: 2024Q3

REPORT INFORMATION
  Report Type: Spontaneous
  Country: GB (occurrence: GB)
  Receive Date: 20240320
  Receipt Date: 20240712
  Transmission Date: 20241017
  Serious: Yes (Hospitalization, Other)
  Sender: AMGEN
  Company Number: GB-AMGEN-GBRSP2024026533

PATIENT
  Age: 73 Year
  Sex: Female

DRUGS (1)
  1. PROLIA [Suspect]
     Active Substance: DENOSUMAB
     Indication: Osteoporosis postmenopausal
     Dosage: UNK, Q6MO
     Route: 065
     Dates: start: 201802

REACTIONS (5)
  - Parkinson^s disease [Not Recovered/Not Resolved]
  - Intraocular pressure increased [Unknown]
  - Cataract [Unknown]
  - Joint injury [Unknown]
  - Chest pain [Unknown]
